FAERS Safety Report 15119784 (Version 1)
Quarter: 2018Q3

REPORT INFORMATION
  Report Type: Spontaneous
  Country: FR (occurrence: FR)
  Receive Date: 20180709
  Receipt Date: 20180709
  Transmission Date: 20181010
  Serious: Yes (Hospitalization)
  Sender: FDA-Public Use
  Company Number: FR-CONCORDIA PHARMACEUTICALS INC.-E2B_00013329

PATIENT
  Age: 75 Year
  Sex: Female
  Weight: 50 kg

DRUGS (12)
  1. XATRAL L P 5 MG, COMPRIM? PELLICUL? ? LIB?RATION PROLONG?E [Concomitant]
     Indication: MICTURITION DISORDER
     Route: 048
     Dates: end: 20180609
  2. DIGOXIN. [Suspect]
     Active Substance: DIGOXIN
     Indication: ATRIAL FIBRILLATION
     Route: 048
     Dates: end: 20180609
  3. DIFFU K [Concomitant]
     Active Substance: POTASSIUM CHLORIDE
     Indication: MINERAL SUPPLEMENTATION
     Route: 048
     Dates: end: 20180609
  4. SPIRONOLACTONE ARROW [Concomitant]
     Active Substance: SPIRONOLACTONE
     Route: 048
     Dates: end: 20180609
  5. MOVICOL [Concomitant]
     Active Substance: POLYETHYLENE GLYCOL 3350\POTASSIUM CHLORIDE\SODIUM BICARBONATE\SODIUM CHLORIDE
     Indication: CONSTIPATION
     Route: 048
     Dates: end: 20180609
  6. GALVUS 50 MG, COMPRIM? [Concomitant]
     Active Substance: VILDAGLIPTIN
     Indication: TYPE 2 DIABETES MELLITUS
     Route: 048
     Dates: end: 20180609
  7. FUROSEMIDE ARROW 20 MG, COMPRIM? S?CABLE [Concomitant]
     Active Substance: FUROSEMIDE
     Indication: DIURETIC THERAPY
     Route: 048
     Dates: end: 20180609
  8. REPAGLINIDE ARROW 2 MG, COMPRIM? [Concomitant]
     Indication: TYPE 2 DIABETES MELLITUS
     Route: 048
     Dates: end: 20180609
  9. ATORVASTATINE ARROW 40 MG, COMPRIM? PELLICUL? [Concomitant]
     Indication: DISEASE RISK FACTOR
     Route: 048
     Dates: end: 20180609
  10. MONO TILDIEM LP 300 MG, G?LULE ? LIB?RATION PROLONG?E [Concomitant]
     Indication: DISEASE RISK FACTOR
     Route: 048
     Dates: end: 20180609
  11. OXYCONTIN L.P. 5 MG, COMPRIM? P?LLICUL? ? LIB?RATION PROLONG?E [Concomitant]
     Indication: PAIN
     Route: 048
     Dates: end: 20180609
  12. ALPRAZOLAM MYLAN [Concomitant]
     Active Substance: ALPRAZOLAM
     Indication: ANXIETY
     Route: 048
     Dates: end: 20180609

REACTIONS (3)
  - Overdose [Recovered/Resolved]
  - Bradycardia [Recovered/Resolved]
  - Metabolic acidosis [Recovered/Resolved]

NARRATIVE: CASE EVENT DATE: 20180609
